FAERS Safety Report 5104756-4 (Version None)
Quarter: 2006Q3

REPORT INFORMATION
  Report Type: 
  Country: None (occurrence: None)
  Receive Date: 20060911
  Receipt Date: 20060911
  Transmission Date: 20061208
  Serious: Yes (Other)
  Sender: FDA-Public Use
  Company Number: None

PATIENT
  Age: 34 Year
  Sex: Female
  Weight: 81.6475 kg

DRUGS (10)
  1. ALBUTEROL [Suspect]
     Indication: LUNG INFECTION
     Dosage: TWO PUFFS 4X DAY AS NEEDED INHAL
     Route: 055
     Dates: start: 20060907, end: 20060909
  2. ALBUTEROL [Suspect]
     Indication: PULMONARY OEDEMA
     Dosage: TWO PUFFS 4X DAY AS NEEDED INHAL
     Route: 055
     Dates: start: 20060907, end: 20060909
  3. LEVAQUIN [Suspect]
     Indication: BRONCHITIS
     Dosage: 500 MG 1 DAILY FOR 7 DAYS PO
     Route: 048
     Dates: start: 20060907, end: 20060909
  4. LEVAQUIN [Suspect]
     Indication: LUNG INFECTION
     Dosage: 500 MG 1 DAILY FOR 7 DAYS PO
     Route: 048
     Dates: start: 20060907, end: 20060909
  5. SCOPOLAMINE PATCH [Concomitant]
  6. SCOPOLAMINE PATCH [Concomitant]
  7. CLARITIN [Concomitant]
  8. SUDAFED 12 HOUR [Concomitant]
  9. FLONASE [Concomitant]
  10. TYLENOL [Concomitant]

REACTIONS (8)
  - ANXIETY [None]
  - CHEST PAIN [None]
  - DIZZINESS [None]
  - DRUG HYPERSENSITIVITY [None]
  - FEELING JITTERY [None]
  - PANIC ATTACK [None]
  - TREMOR [None]
  - VISION BLURRED [None]
